FAERS Safety Report 15693916 (Version 5)
Quarter: 2019Q2

REPORT INFORMATION
  Report Type: Spontaneous
  Country: US (occurrence: US)
  Receive Date: 20181206
  Receipt Date: 20190410
  Transmission Date: 20190711
  Serious: Yes (Hospitalization, Other)
  Sender: FDA-Public Use
  Company Number: US-GLAXOSMITHKLINE-US2018GSK217359

PATIENT
  Age: 88 Year
  Sex: Male

DRUGS (2)
  1. TRELEGY ELLIPTA [Suspect]
     Active Substance: FLUTICASONE FUROATE\UMECLIDINIUM BROMIDE\VILANTEROL TRIFENATATE
     Indication: CHRONIC OBSTRUCTIVE PULMONARY DISEASE
     Dosage: 100,62.5,25  MCG.UNK
     Route: 055
  2. ADVAIR HFA [Suspect]
     Active Substance: FLUTICASONE PROPIONATE\SALMETEROL XINAFOATE
     Indication: PRODUCT USED FOR UNKNOWN INDICATION
     Dosage: UNK
     Route: 055

REACTIONS (10)
  - Viral infection [Unknown]
  - Wrong technique in device usage process [Unknown]
  - Physiotherapy [Unknown]
  - Pneumonia [Unknown]
  - Fall [Unknown]
  - Oxygen therapy [Unknown]
  - Coronary arterial stent insertion [Unknown]
  - Hip fracture [Unknown]
  - Rehabilitation therapy [Unknown]
  - Exostosis [Unknown]

NARRATIVE: CASE EVENT DATE: 2006
